FAERS Safety Report 6173209-7 (Version None)
Quarter: 2009Q2

REPORT INFORMATION
  Report Type: 
  Country: None (occurrence: None)
  Receive Date: 20090430
  Receipt Date: 20090421
  Transmission Date: 20091009
  Serious: Yes (Other)
  Sender: FDA-Public Use
  Company Number: CN-PFIZER INC-2009203503

PATIENT

DRUGS (1)
  1. CEFOPERAZONE SODIUM, SULBACTAM SODIUM [Suspect]
     Indication: UPPER RESPIRATORY TRACT INFECTION
     Route: 042

REACTIONS (9)
  - BLOOD PRESSURE DECREASED [None]
  - CHEILITIS [None]
  - DYSPHORIA [None]
  - ERYTHEMA OF EYELID [None]
  - EYE SWELLING [None]
  - LIP SWELLING [None]
  - PERIPHERAL COLDNESS [None]
  - RASH ERYTHEMATOUS [None]
  - TACHYPNOEA [None]
